FAERS Safety Report 16655692 (Version 8)
Quarter: 2021Q4

REPORT INFORMATION
  Report Type: Report from Study
  Country: DE (occurrence: DE)
  Receive Date: 20190801
  Receipt Date: 20211102
  Transmission Date: 20220303
  Serious: Yes (Hospitalization, Other)
  Sender: FDA-Public Use
  Company Number: PHHY2019DE175890

PATIENT
  Age: 74 Year
  Sex: Male
  Weight: 68 kg

DRUGS (21)
  1. OMNITROPE [Suspect]
     Active Substance: SOMATROPIN
     Indication: Growth hormone deficiency
     Dosage: 0.6 MG, QD (10 MG/1.5 ML SOLUTION FOR INJECTION)
     Route: 058
     Dates: start: 20140509
  2. OMNITROPE [Suspect]
     Active Substance: SOMATROPIN
     Dosage: 0.6 MG, QD (5MG/ML SOLUTION FOR INJECTION)
     Route: 058
     Dates: start: 20180718
  3. CANDESARTAN [Concomitant]
     Active Substance: CANDESARTAN
     Indication: Hypertension
     Dosage: UNK
     Route: 048
     Dates: start: 201908
  4. HYDROCORTISONE [Concomitant]
     Active Substance: HYDROCORTISONE
     Indication: Adrenocorticotropic hormone deficiency
     Dosage: UNK
     Route: 048
     Dates: start: 1999
  5. TORSEMIDE [Concomitant]
     Active Substance: TORSEMIDE
     Indication: Hypertension
     Dosage: UNK
     Route: 048
     Dates: start: 2014, end: 201903
  6. TORSEMIDE [Concomitant]
     Active Substance: TORSEMIDE
     Indication: Coronary artery disease
  7. BISOPROLOL [Concomitant]
     Active Substance: BISOPROLOL
     Indication: Hypertension
     Dosage: UNK
     Route: 048
     Dates: start: 201903
  8. TESTOSTERONE [Concomitant]
     Active Substance: TESTOSTERONE
     Indication: Luteinising hormone deficiency
     Dosage: (ROUTE: TRANSCUTAN)
     Route: 065
     Dates: start: 1999
  9. TESTOSTERONE [Concomitant]
     Active Substance: TESTOSTERONE
     Indication: Follicle stimulating hormone deficiency
  10. PHENPROCOUMON [Concomitant]
     Active Substance: PHENPROCOUMON
     Indication: Atrial fibrillation
     Dosage: UNK
     Route: 048
     Dates: start: 2012, end: 201808
  11. AMLODIPINE BESYLATE [Concomitant]
     Active Substance: AMLODIPINE BESYLATE
     Indication: Hypertension
     Dosage: UNK
     Route: 048
     Dates: start: 2004, end: 2014
  12. SIMVASTATIN [Concomitant]
     Active Substance: SIMVASTATIN
     Indication: Hypercholesterolaemia
     Dosage: UNK
     Route: 048
     Dates: start: 2004
  13. VALSARTAN [Concomitant]
     Active Substance: VALSARTAN
     Indication: Hypertension
     Dosage: UNK
     Route: 048
     Dates: start: 2004, end: 201908
  14. METOPROLOL [Concomitant]
     Active Substance: METOPROLOL
     Indication: Hypertension
     Dosage: UNK
     Route: 048
     Dates: start: 2012, end: 201903
  15. METOPROLOL [Concomitant]
     Active Substance: METOPROLOL
     Indication: Coronary artery disease
  16. METOPROLOL [Concomitant]
     Active Substance: METOPROLOL
     Indication: Atrial fibrillation
  17. LERCANIDIPINE [Concomitant]
     Active Substance: LERCANIDIPINE
     Indication: Hypertension
     Dosage: UNK
     Route: 048
     Dates: start: 2014, end: 201903
  18. LEVOTHYROXINE [Concomitant]
     Active Substance: LEVOTHYROXINE
     Indication: Blood thyroid stimulating hormone decreased
     Dosage: UNK
     Route: 048
     Dates: start: 1999
  19. LEVOTHYROXINE [Concomitant]
     Active Substance: LEVOTHYROXINE
     Indication: Thyroid stimulating hormone deficiency
  20. SPIRONOLACTONE [Concomitant]
     Active Substance: SPIRONOLACTONE
     Indication: Hypertension
     Dosage: UNK
     Route: 048
     Dates: start: 201903
  21. DONEPEZIL [Concomitant]
     Active Substance: DONEPEZIL
     Indication: Dementia
     Dosage: UNK
     Route: 048
     Dates: start: 2016

REACTIONS (26)
  - Acute kidney injury [Recovered/Resolved]
  - Blood creatinine increased [Unknown]
  - Glomerular filtration rate decreased [Unknown]
  - Dehydration [Recovered/Resolved]
  - Diarrhoea [Recovered/Resolved]
  - Gastritis [Recovered/Resolved]
  - Vomiting [Recovered/Resolved]
  - Chills [Recovered/Resolved]
  - Dementia [Unknown]
  - Renal failure [Unknown]
  - Hyperthyroidism [Unknown]
  - Drug use disorder [Unknown]
  - Acute kidney injury [Unknown]
  - Adrenal insufficiency [Unknown]
  - Altered state of consciousness [Unknown]
  - Atrial fibrillation [Unknown]
  - Gastrointestinal haemorrhage [Unknown]
  - Adrenocortical insufficiency acute [Unknown]
  - Depressed level of consciousness [Recovered/Resolved]
  - Adrenocortical insufficiency acute [Recovered/Resolved]
  - Cerebral atrophy [Not Recovered/Not Resolved]
  - Diarrhoea [Unknown]
  - Benign enlargement of the subarachnoid spaces [Not Recovered/Not Resolved]
  - Dehydration [Unknown]
  - Gastritis [Unknown]
  - Vertigo [Not Recovered/Not Resolved]

NARRATIVE: CASE EVENT DATE: 20170501
